FAERS Safety Report 4723753-1 (Version None)
Quarter: 2005Q3

REPORT INFORMATION
  Report Type: 
  Country: None (occurrence: None)
  Receive Date: 20050720
  Receipt Date: 20050720
  Transmission Date: 20060218
  Serious: No
  Sender: FDA-Public Use
  Company Number: None

PATIENT
  Age: 59 Year
  Sex: Male

DRUGS (3)
  1. GASTROGRAFIN [Suspect]
     Indication: COMPUTERISED TOMOGRAM
     Dosage: 15ML QHS + 15 ML QAM
  2. PHENERGAN [Suspect]
     Indication: NAUSEA
     Dosage: 25MG IM X 2 DOSES
     Route: 030
  3. PHENERGAN [Suspect]
     Indication: VOMITING
     Dosage: 25MG IM X 2 DOSES
     Route: 030

REACTIONS (4)
  - DIARRHOEA [None]
  - DYSTONIA [None]
  - NAUSEA [None]
  - VOMITING [None]
